FAERS Safety Report 7499646-6 (Version None)
Quarter: 2011Q2

REPORT INFORMATION
  Report Type: 
  Country: None (occurrence: None)
  Receive Date: 20110524
  Receipt Date: 20110512
  Transmission Date: 20111010
  Serious: Yes (Life-Threatening, Hospitalization)
  Sender: FDA-Public Use
  Company Number: DE-ROCHE-498677

PATIENT
  Sex: Male
  Weight: 75 kg

DRUGS (11)
  1. FLUOROURACIL [Suspect]
     Dosage: DOSAGE FORM REPORTED AS INFUSION. BOLUS  800 MG GIVEN AS BOLUS AND 1220 MG AS CONTINUOUS INFUSION O+
     Route: 042
     Dates: start: 20070123, end: 20070514
  2. FLUOROURACIL [Suspect]
     Route: 042
     Dates: start: 20070123, end: 20070514
  3. DEXANE [Concomitant]
     Dosage: TOTAL DAILY DOSE REPORTED AS S.C., DRUG NAME: DEXANE 0.4
     Route: 058
     Dates: start: 20070513, end: 20070531
  4. OXALIPLATIN [Suspect]
     Dosage: DOSAGE FORM REPORTED AS INFUSION. UNITS REPORTED AS 85 MG/M2; LAST DOSE PRIOR TO SAE: 14 MAY 2007.
     Route: 042
     Dates: start: 20070123, end: 20070514
  5. LEUCOVORIN CALCIUM [Suspect]
     Route: 042
     Dates: start: 20070618
  6. FLUOROURACIL [Suspect]
     Dosage: BOLUS
     Route: 042
     Dates: start: 20070618
  7. FLUOROURACIL [Suspect]
     Route: 042
     Dates: start: 20070618
  8. LEUCOVORIN CALCIUM [Suspect]
     Dosage: DOSAGE FORM REPORTED AS INFUSION. UNITS REPORTED AS 200 MG; LAST DOSE PRIOR TO SAE: 14 MAY 2007
     Route: 042
     Dates: start: 20070123, end: 20070514
  9. BEVACIZUMAB [Suspect]
     Route: 042
     Dates: start: 20070618
  10. ENOXAPARIN SODIUM [Concomitant]
     Dosage: DRUG REPORTED AS CLEXANE 0.4.
     Route: 058
     Dates: start: 20070518, end: 20070531
  11. BEVACIZUMAB [Suspect]
     Dosage: DOSAGE FORM:INFUSION. UNITS REPORTED:7.5 MG/KG; LAST DOSE PRIOR TO SAE: 14 MAY 2007
     Route: 042
     Dates: start: 20070123, end: 20070514

REACTIONS (4)
  - NEUTROPENIA [None]
  - ABDOMINAL PAIN [None]
  - DIARRHOEA [None]
  - CIRCULATORY COLLAPSE [None]
